FAERS Safety Report 11105699 (Version 2)
Quarter: 2015Q2

REPORT INFORMATION
  Report Type: Spontaneous
  Country: US (occurrence: None)
  Receive Date: 20150508
  Receipt Date: 20150522
  Transmission Date: 20150821
  Serious: Yes (Death, Other)
  Sender: FDA-Public Use
  Company Number: ADR-2015-00865

PATIENT
  Sex: Male

DRUGS (3)
  1. COMPOUND BACLOFEN INTRATHECAL [Suspect]
     Active Substance: BACLOFEN
     Indication: MUSCLE SPASTICITY
  2. ATIVAN [Suspect]
     Active Substance: LORAZEPAM
  3. TYLENOL [Suspect]
     Active Substance: ACETAMINOPHEN

REACTIONS (9)
  - Autonomic nervous system imbalance [None]
  - Hyperhidrosis [None]
  - Device infusion issue [None]
  - Quality of life decreased [None]
  - Muscle rigidity [None]
  - Oxygen saturation decreased [None]
  - Drug withdrawal syndrome [None]
  - Asthenia [None]
  - Wound [None]
